FAERS Safety Report 5367067-8 (Version None)
Quarter: 2007Q2

REPORT INFORMATION
  Report Type: 
  Country: None (occurrence: None)
  Receive Date: 20070622
  Receipt Date: 20070618
  Transmission Date: 20071010
  Serious: Yes (Hospitalization)
  Sender: FDA-Public Use
  Company Number: B0475552A

PATIENT
  Age: 56 Year
  Sex: Male

DRUGS (4)
  1. DEROXAT [Suspect]
     Indication: DYSTHYMIC DISORDER
     Dosage: 2TAB THREE TIMES PER DAY
     Route: 048
     Dates: start: 20060216, end: 20060323
  2. NOCTRAN [Concomitant]
     Indication: SLEEP DISORDER
     Dosage: 2UNIT PER DAY
     Route: 048
     Dates: start: 20060216
  3. TERCIAN [Concomitant]
     Indication: DYSTHYMIC DISORDER
     Dosage: 35MG PER DAY
     Route: 048
     Dates: start: 20060216, end: 20060323
  4. LEXOMIL [Concomitant]
     Indication: ANXIETY
     Dosage: 1UNIT TWICE PER DAY
     Route: 048
     Dates: start: 20060216, end: 20060323

REACTIONS (6)
  - ABNORMAL BEHAVIOUR [None]
  - ASTHENIA [None]
  - CONFUSIONAL STATE [None]
  - DISORIENTATION [None]
  - OVERDOSE [None]
  - PERSONALITY DISORDER [None]
